FAERS Safety Report 18157876 (Version 1)
Quarter: 2020Q3

REPORT INFORMATION
  Report Type: Spontaneous
  Country: NL (occurrence: NL)
  Receive Date: 20200817
  Receipt Date: 20200817
  Transmission Date: 20201103
  Serious: Yes (Other)
  Sender: FDA-Public Use
  Company Number: NL-PFIZER INC-2020316533

PATIENT
  Sex: Female
  Weight: 58 kg

DRUGS (3)
  1. SERTRALINE [Suspect]
     Active Substance: SERTRALINE HYDROCHLORIDE
     Indication: PANIC ATTACK
     Dosage: 10 MG, 1X/DAY (1X1 PIECE)
     Dates: start: 20200513, end: 20200728
  2. SERTRALINE [Suspect]
     Active Substance: SERTRALINE HYDROCHLORIDE
     Indication: DEPRESSION
  3. TIBOLON [Concomitant]
     Dosage: UNK; TABLET, 2,5 MG (MILLIGRAM)

REACTIONS (1)
  - Urinary retention [Recovering/Resolving]
